FAERS Safety Report 19401452 (Version 2)
Quarter: 2021Q2

REPORT INFORMATION
  Report Type: Spontaneous
  Country: GR (occurrence: GR)
  Receive Date: 20210611
  Receipt Date: 20210625
  Transmission Date: 20210717
  Serious: Yes (Other)
  Sender: FDA-Public Use
  Company Number: GR-AMGEN-GRCSP2018117725

PATIENT
  Age: 62 Year
  Sex: Female

DRUGS (65)
  1. TRASTUZUMAB. [Suspect]
     Active Substance: TRASTUZUMAB
     Dosage: 1 DF, CYCLICAL
     Route: 065
     Dates: start: 2009
  2. TRASTUZUMAB. [Suspect]
     Active Substance: TRASTUZUMAB
     Dosage: 1 DF, CYCLICAL, COMBINATION WITH CAPECITABINE
     Route: 065
     Dates: start: 2009
  3. TRASTUZUMAB. [Suspect]
     Active Substance: TRASTUZUMAB
     Dosage: 1 DF, QD
     Route: 065
     Dates: start: 2009
  4. CAPECITABINE. [Suspect]
     Active Substance: CAPECITABINE
     Indication: RECURRENT CANCER
     Dosage: 1 DF, QD
     Route: 065
     Dates: start: 2009
  5. CAPECITABINE. [Suspect]
     Active Substance: CAPECITABINE
     Dosage: UNK UNK, CYCLICAL, COMBINATION WITH TRASTUZUMAB
     Route: 065
     Dates: start: 2009
  6. GEMCITABINE. [Suspect]
     Active Substance: GEMCITABINE
     Indication: RECURRENT CANCER
     Dosage: 1 DF CYCLICAL
     Route: 065
     Dates: start: 2009
  7. ENDOXAN [CYCLOPHOSPHAMIDE] [Suspect]
     Active Substance: CYCLOPHOSPHAMIDE
     Dosage: 1 DF, QD
     Route: 065
     Dates: start: 2006
  8. TRASTUZUMAB. [Suspect]
     Active Substance: TRASTUZUMAB
     Dosage: 1 DF, QD
     Route: 065
     Dates: start: 2009
  9. LIPOSOMAL DOXORUBICIN HYDROCHLORIDE [Suspect]
     Active Substance: DOXORUBICIN HYDROCHLORIDE
     Indication: BREAST CANCER METASTATIC
     Dosage: 1 DF, QD
     Route: 065
     Dates: start: 2009
  10. FULVESTRANT. [Suspect]
     Active Substance: FULVESTRANT
     Indication: RECURRENT CANCER
     Dosage: 1 DF, QD
     Route: 030
     Dates: start: 2009
  11. PACLITAXEL. [Suspect]
     Active Substance: PACLITAXEL
     Dosage: 1 DF, QD
     Route: 065
     Dates: start: 2006
  12. METHOTREXATE. [Suspect]
     Active Substance: METHOTREXATE
     Indication: BREAST CANCER METASTATIC
     Dosage: 1 DF, QD
     Route: 065
     Dates: start: 2006
  13. DOXORUBICIN [Suspect]
     Active Substance: DOXORUBICIN
     Indication: BREAST CANCER METASTATIC
     Dosage: UNK
     Route: 065
     Dates: start: 2009
  14. TRASTUZUMAB. [Suspect]
     Active Substance: TRASTUZUMAB
     Dosage: 1 DF, CYCLICAL, COMBINATION WITH VINORELBINE
     Route: 065
     Dates: start: 2009
  15. TRASTUZUMAB. [Suspect]
     Active Substance: TRASTUZUMAB
     Dosage: 1 DF, CYCLICAL, COMBINATION WITH ERIBULIN
     Route: 065
     Dates: start: 2009
  16. LIPOSOMAL DOXORUBICIN HYDROCHLORIDE [Suspect]
     Active Substance: DOXORUBICIN HYDROCHLORIDE
     Indication: RECURRENT CANCER
     Dosage: 1 DF, CYCLICAL
     Route: 065
     Dates: start: 2009
  17. EVEROLIMUS. [Suspect]
     Active Substance: EVEROLIMUS
     Indication: BREAST CANCER
  18. LAPATINIB DITOSYLATE MONOHYDRATE [Suspect]
     Active Substance: LAPATINIB DITOSYLATE
     Indication: METASTATIC MALIGNANT MELANOMA
     Dosage: 1 DF, QD
     Route: 065
     Dates: start: 2009
  19. CARBOPLATIN. [Suspect]
     Active Substance: CARBOPLATIN
     Indication: BREAST CANCER METASTATIC
     Dosage: 1 DF CYCLICAL
     Route: 065
     Dates: start: 2009
  20. ERIBULIN [Suspect]
     Active Substance: ERIBULIN
     Indication: BREAST CANCER METASTATIC
     Dosage: 1 DF CYCLICAL
     Route: 041
     Dates: start: 2009
  21. ENDOXAN [CYCLOPHOSPHAMIDE] [Suspect]
     Active Substance: CYCLOPHOSPHAMIDE
     Dosage: 1 DF, CYCLIC
     Route: 065
  22. METHOTREXATE SODIUM. [Suspect]
     Active Substance: METHOTREXATE SODIUM
     Dosage: 1 DF, QD
     Route: 065
     Dates: start: 2006
  23. TRASTUZUMAB EMTANSINE [Suspect]
     Active Substance: ADO-TRASTUZUMAB EMTANSINE
     Indication: BREAST CANCER METASTATIC
  24. TRASTUZUMAB. [Suspect]
     Active Substance: TRASTUZUMAB
     Indication: RECURRENT CANCER
     Dosage: 1 DF, CYCLICAL
     Route: 065
     Dates: start: 2009
  25. TRASTUZUMAB. [Suspect]
     Active Substance: TRASTUZUMAB
     Dosage: 1 DF, CYCLICAL, COMBINATION WITH LIPOSOMAL DOXORUBICIN HYDROCHLORIDE
     Route: 065
     Dates: start: 2009
  26. LAPATINIB DITOSYLATE MONOHYDRATE [Suspect]
     Active Substance: LAPATINIB DITOSYLATE
     Indication: RECURRENT CANCER
  27. FULVESTRANT. [Suspect]
     Active Substance: FULVESTRANT
     Indication: METASTATIC MALIGNANT MELANOMA
  28. EXEMESTANE. [Suspect]
     Active Substance: EXEMESTANE
     Indication: BREAST CANCER METASTATIC
     Dosage: 1 DF, QD
     Route: 065
     Dates: start: 2009
  29. ERIBULIN [Suspect]
     Active Substance: ERIBULIN
     Indication: RECURRENT CANCER
     Dosage: 1 DF CYCLICAL
     Route: 065
     Dates: start: 2009
  30. ERIBULIN [Suspect]
     Active Substance: ERIBULIN
     Dosage: 1 DF, QD
     Route: 065
     Dates: start: 2009
  31. CAPECITABINE. [Suspect]
     Active Substance: CAPECITABINE
     Indication: BREAST CANCER METASTATIC
     Dosage: 1 DF CYCLICAL, COMBINATION WITH LAPATINIB
     Route: 065
     Dates: start: 2009
  32. CAPECITABINE BIOGARAN [Suspect]
     Active Substance: CAPECITABINE
     Indication: BREAST CANCER METASTATIC
     Dosage: 1 DF, QD
     Route: 065
     Dates: start: 2009
  33. EPIRUBICIN HYDROCHLORIDE. [Suspect]
     Active Substance: EPIRUBICIN HYDROCHLORIDE
     Indication: RECURRENT CANCER
     Dosage: UNK
     Route: 065
  34. TRASTUZUMAB. [Suspect]
     Active Substance: TRASTUZUMAB
     Indication: BREAST CANCER METASTATIC
     Dosage: 1 DF, QD COMBINATION WITH EXEMESTANE AND EVEROLIMUS
     Route: 065
     Dates: start: 2009
  35. TRASTUZUMAB. [Suspect]
     Active Substance: TRASTUZUMAB
     Dosage: 1 DF, CYCLICAL, COMBINATION WITH FULVESTRANT
     Route: 065
     Dates: start: 2009
  36. TRASTUZUMAB. [Suspect]
     Active Substance: TRASTUZUMAB
     Dosage: 1 DF, CYCLICAL, COMBINATION WITH GEMCITABINE AND CARBOPLATIN
     Route: 065
     Dates: start: 2009
  37. TRASTUZUMAB. [Suspect]
     Active Substance: TRASTUZUMAB
     Dosage: 1 DF, QD
     Route: 065
     Dates: start: 2009
  38. TRASTUZUMAB. [Suspect]
     Active Substance: TRASTUZUMAB
     Dosage: 1 DF, QD
     Route: 065
     Dates: start: 2009
  39. EVEROLIMUS. [Suspect]
     Active Substance: EVEROLIMUS
     Indication: BREAST CANCER METASTATIC
     Dosage: 1 DF, QD
     Route: 065
     Dates: start: 2009
  40. EVEROLIMUS. [Suspect]
     Active Substance: EVEROLIMUS
     Indication: RECURRENT CANCER
  41. FULVESTRANT. [Suspect]
     Active Substance: FULVESTRANT
     Indication: BREAST CANCER METASTATIC
     Dosage: 1 DF CYCLICAL
     Route: 030
     Dates: start: 2009
  42. TAMOXIFEN CITRATE. [Suspect]
     Active Substance: TAMOXIFEN CITRATE
     Indication: RECURRENT CANCER
     Dosage: 1 DF, QD
     Route: 065
     Dates: start: 2009
  43. FLUOROURACIL. [Suspect]
     Active Substance: FLUOROURACIL
     Dosage: 1 DF, CYCLICAL
     Route: 065
     Dates: start: 2006
  44. ENDOXAN [CYCLOPHOSPHAMIDE] [Suspect]
     Active Substance: CYCLOPHOSPHAMIDE
     Indication: BREAST CANCER METASTATIC
     Dosage: 1000 MILLIGRAM, CYCLICAL
     Route: 065
     Dates: start: 2006
  45. TRASTUZUMAB EMTANSINE [Suspect]
     Active Substance: ADO-TRASTUZUMAB EMTANSINE
     Indication: RECURRENT CANCER
     Dosage: UNK
     Route: 065
     Dates: start: 2009
  46. TRASTUZUMAB. [Suspect]
     Active Substance: TRASTUZUMAB
     Dosage: 1 DF, CYCLICAL,  COMBINATION WITH TAMOXIFEN
     Route: 065
     Dates: start: 2009
  47. TRASTUZUMAB. [Suspect]
     Active Substance: TRASTUZUMAB
     Dosage: 1 DF, QD
     Route: 065
     Dates: start: 2009
  48. TRASTUZUMAB. [Suspect]
     Active Substance: TRASTUZUMAB
     Dosage: 1 DF, QD
     Route: 065
     Dates: start: 2009
  49. TAMOXIFEN CITRATE. [Suspect]
     Active Substance: TAMOXIFEN CITRATE
     Indication: BREAST CANCER METASTATIC
     Dosage: 1 DF CYCLICAL
     Route: 048
     Dates: start: 2009
  50. EXEMESTANE. [Suspect]
     Active Substance: EXEMESTANE
     Indication: RECURRENT CANCER
     Dosage: 1 DF CYCLICAL
     Route: 065
     Dates: start: 2009
  51. FLUOROURACIL. [Suspect]
     Active Substance: FLUOROURACIL
     Dosage: 1 DF, QD
     Route: 065
     Dates: start: 2006
  52. GEMCITABINE. [Suspect]
     Active Substance: GEMCITABINE
     Indication: BREAST CANCER METASTATIC
     Dosage: 1 DF, QD
     Route: 065
     Dates: start: 2009
  53. VINORELBINE [Suspect]
     Active Substance: VINORELBINE TARTRATE
     Indication: RECURRENT CANCER
     Dosage: 1 DF CYCLICAL
     Route: 065
     Dates: start: 2009
  54. VINORELBINE [Suspect]
     Active Substance: VINORELBINE TARTRATE
     Indication: BREAST CANCER METASTATIC
     Dosage: 1 DF, QD
     Route: 065
     Dates: start: 2009
  55. METHOTREXATE SODIUM. [Suspect]
     Active Substance: METHOTREXATE SODIUM
     Indication: BREAST CANCER METASTATIC
     Dosage: 1 DF, CYCLICAL
     Route: 065
     Dates: start: 2006
  56. EPIRUBICIN [Suspect]
     Active Substance: EPIRUBICIN
     Indication: BREAST CANCER METASTATIC
     Dosage: UNK
     Route: 065
     Dates: start: 2009
  57. CYCLOPHOSPHAMIDE. [Suspect]
     Active Substance: CYCLOPHOSPHAMIDE
     Indication: BREAST CANCER METASTATIC
     Dosage: UNK
     Route: 065
     Dates: start: 2006
  58. EVEROLIMUS. [Suspect]
     Active Substance: EVEROLIMUS
     Indication: PROPHYLAXIS AGAINST TRANSPLANT REJECTION
     Dosage: 1 DF, CYCLICAL
     Route: 065
     Dates: start: 2009
  59. CARBOPLATIN. [Suspect]
     Active Substance: CARBOPLATIN
     Indication: RECURRENT CANCER
     Dosage: 1 DF, QD
     Route: 065
     Dates: start: 2009
  60. DOCETAXEL. [Suspect]
     Active Substance: DOCETAXEL
     Indication: BREAST CANCER METASTATIC
     Dosage: 1 DF, QD
     Route: 065
     Dates: start: 2009
  61. PACLITAXEL. [Suspect]
     Active Substance: PACLITAXEL
     Indication: BREAST CANCER METASTATIC
     Dosage: 1 DF CYCLICAL
     Route: 065
     Dates: start: 2006
  62. LAPATINIB DITOSYLATE MONOHYDRATE [Suspect]
     Active Substance: LAPATINIB DITOSYLATE
     Indication: BREAST CANCER METASTATIC
     Dosage: 1 DF CYCLICAL
     Route: 065
     Dates: start: 2009
  63. FLUOROURACIL. [Suspect]
     Active Substance: FLUOROURACIL
     Indication: BREAST CANCER METASTATIC
     Dosage: 1 DF CYCLICAL
     Route: 065
     Dates: start: 2006
  64. DOCETAXEL. [Suspect]
     Active Substance: DOCETAXEL
     Indication: RECURRENT CANCER
     Dosage: 1 DF CYCLICAL
     Route: 065
     Dates: start: 2009
  65. METHOTREXATE SODIUM. [Suspect]
     Active Substance: METHOTREXATE SODIUM
     Dosage: 1 DF, QD
     Route: 065
     Dates: start: 2009

REACTIONS (4)
  - Metastases to lymph nodes [Unknown]
  - Metastases to bone [Unknown]
  - Metastases to lung [Unknown]
  - Malignant neoplasm progression [Unknown]
